FAERS Safety Report 8226033-5 (Version None)
Quarter: 2012Q1

REPORT INFORMATION
  Report Type: 
  Country: None (occurrence: None)
  Receive Date: 20120321
  Receipt Date: 20120316
  Transmission Date: 20120608
  Serious: Yes (Hospitalization, Other)
  Sender: FDA-Public Use
  Company Number: US-PFIZER INC-2009165247

PATIENT
  Sex: Male

DRUGS (1)
  1. CHANTIX [Suspect]
     Indication: SMOKING CESSATION THERAPY
     Dosage: ONE TABLET TWICE DAILY
     Route: 048
     Dates: start: 20070313, end: 20070420

REACTIONS (8)
  - ANXIETY [None]
  - PANIC ATTACK [None]
  - SUICIDE ATTEMPT [None]
  - LOSS OF CONSCIOUSNESS [None]
  - MOOD SWINGS [None]
  - AGGRESSION [None]
  - DEPRESSION [None]
  - ABNORMAL BEHAVIOUR [None]
